FAERS Safety Report 8803514 (Version 1)
Quarter: 2012Q4

REPORT INFORMATION
  Report Type: 
  Country: US (occurrence: US)
  Receive Date: 20120924
  Receipt Date: 20120924
  Transmission Date: 20130627
  Serious: No
  Sender: FDA-Public Use
  Company Number: US-009507513-1209USA004719

PATIENT
  Age: 55 Year
  Sex: Male

DRUGS (5)
  1. VYTORIN [Suspect]
     Dosage: UNK
     Dates: start: 2007
  2. CRESTOR [Suspect]
  3. NORVASC [Concomitant]
  4. LISINOPRIL [Concomitant]
  5. HYDROCHLOROTHIAZIDE [Concomitant]

REACTIONS (1)
  - Hypertension [Unknown]
